FAERS Safety Report 19146758 (Version 2)
Quarter: 2021Q2

REPORT INFORMATION
  Report Type: Spontaneous
  Country: JP (occurrence: JP)
  Receive Date: 20210416
  Receipt Date: 20210421
  Transmission Date: 20210717
  Serious: Yes (Other)
  Sender: FDA-Public Use
  Company Number: JP-PFIZER INC-2021403029

PATIENT
  Sex: Female

DRUGS (1)
  1. MEKTOVI [Suspect]
     Active Substance: BINIMETINIB
     Dosage: UNK
     Route: 048

REACTIONS (3)
  - Colour blindness [Recovered/Resolved]
  - Intestinal obstruction [Unknown]
  - Melaena [Not Recovered/Not Resolved]
